FAERS Safety Report 24035397 (Version 2)
Quarter: 2024Q3

REPORT INFORMATION
  Report Type: Report from Study
  Country: CN (occurrence: CN)
  Receive Date: 20240701
  Receipt Date: 20240710
  Transmission Date: 20241016
  Serious: No
  Sender: ROCHE
  Company Number: CN-ROCHE-3578635

PATIENT
  Age: 3 Year

DRUGS (1)
  1. EVRYSDI [Suspect]
     Active Substance: RISDIPLAM
     Indication: Spinal muscular atrophy
     Route: 065
     Dates: start: 20230301

REACTIONS (3)
  - Hydronephrosis [Unknown]
  - Joint dislocation [Unknown]
  - Renal disorder [Unknown]

NARRATIVE: CASE EVENT DATE: 20230311
